FAERS Safety Report 6404709-X (Version None)
Quarter: 2009Q4

REPORT INFORMATION
  Report Type: 
  Country: None (occurrence: None)
  Receive Date: 20091016
  Receipt Date: 20091002
  Transmission Date: 20100525
  Serious: Yes (Hospitalization)
  Sender: FDA-Public Use
  Company Number: EG-GENENTECH-292291

PATIENT
  Age: 61 Year

DRUGS (1)
  1. RITUXIMAB [Suspect]
     Indication: POLIOMYELITIS
     Dosage: UNK
     Route: 050
     Dates: start: 20090925

REACTIONS (3)
  - CHEST PAIN [None]
  - DYSPNOEA [None]
  - TACHYCARDIA [None]
